FAERS Safety Report 18355433 (Version 1)
Quarter: 2020Q4

REPORT INFORMATION
  Report Type: Spontaneous
  Country: US (occurrence: US)
  Receive Date: 20201006
  Receipt Date: 20201006
  Transmission Date: 20210114
  Serious: No
  Sender: FDA-Public Use
  Company Number: None

PATIENT
  Age: 63 Year
  Sex: Male
  Weight: 64 kg

DRUGS (1)
  1. HYDROXYUREA (HYDROXYUREA 500MG CAP) [Suspect]
     Active Substance: HYDROXYUREA
     Dosage: ?          OTHER FREQUENCY:AM;?
     Dates: start: 20080711, end: 20200813

REACTIONS (1)
  - Hyperbilirubinaemia [None]

NARRATIVE: CASE EVENT DATE: 20200813
